FAERS Safety Report 7650013-1 (Version None)
Quarter: 2011Q3

REPORT INFORMATION
  Report Type: 
  Country: None (occurrence: None)
  Receive Date: 20110802
  Receipt Date: 20110725
  Transmission Date: 20111222
  Serious: Yes (Hospitalization)
  Sender: FDA-Public Use
  Company Number: IT-JNJFOC-20110704455

PATIENT
  Sex: Female

DRUGS (2)
  1. DOXORUBICIN HYDROCHLORIDE [Suspect]
     Indication: PRODUCT USED FOR UNKNOWN INDICATION
     Route: 042
     Dates: start: 20110406, end: 20110516
  2. TRABECTEDIN [Suspect]
     Indication: OVARIAN CANCER
     Route: 042
     Dates: start: 20110406, end: 20110516

REACTIONS (1)
  - ATRIAL FIBRILLATION [None]
